FAERS Safety Report 17777849 (Version 1)
Quarter: 2020Q2

REPORT INFORMATION
  Report Type: Spontaneous
  Country: FR (occurrence: FR)
  Receive Date: 20200513
  Receipt Date: 20200513
  Transmission Date: 20200714
  Serious: Yes (Hospitalization, Other)
  Sender: FDA-Public Use
  Company Number: FR-ASTRAZENECA-2020SE60879

PATIENT
  Age: 29736 Day
  Sex: Male
  Weight: 79 kg

DRUGS (5)
  1. FLECAINE [Concomitant]
     Active Substance: FLECAINIDE
     Route: 065
  2. SPIRIVA [Concomitant]
     Active Substance: TIOTROPIUM BROMIDE MONOHYDRATE
     Route: 065
  3. IMFINZI [Suspect]
     Active Substance: DURVALUMAB
     Indication: LUNG ADENOCARCINOMA STAGE III
     Dosage: 800.0MG UNKNOWN
     Route: 042
     Dates: start: 20181212, end: 20190123
  4. LOSARTAN. [Concomitant]
     Active Substance: LOSARTAN
     Route: 065
  5. METFORMIN [Concomitant]
     Active Substance: METFORMIN HYDROCHLORIDE
     Route: 065

REACTIONS (3)
  - Pulmonary embolism [Unknown]
  - Lung disorder [Recovered/Resolved with Sequelae]
  - Radiation pneumonitis [Unknown]

NARRATIVE: CASE EVENT DATE: 20190130
